FAERS Safety Report 5749158-2 (Version None)
Quarter: 2008Q2

REPORT INFORMATION
  Report Type: 
  Country: None (occurrence: None)
  Receive Date: 20080522
  Receipt Date: 20080509
  Transmission Date: 20081010
  Serious: Yes (Death)
  Sender: FDA-Public Use
  Company Number: GXKR2008IT04374

PATIENT
  Age: 65 Year
  Sex: Male

DRUGS (4)
  1. METHYLPREDNISOLONE [Suspect]
     Indication: IMMUNOSUPPRESSION
     Dosage: 1 G, ONCE/SINGLE, IV BOLUS; TAPERED DOSE FOR 3 MONTHS
     Route: 040
  2. TACROLIMUS [Suspect]
     Indication: IMMUNOSUPPRESSION
  3. LAMIVUDINE [Concomitant]
  4. HEPATECT (IMMUNOGLOBULIN ANTIHEPATITIS B) [Concomitant]

REACTIONS (2)
  - ASPERGILLOSIS [None]
  - KAPOSI'S SARCOMA [None]
